FAERS Safety Report 6547814-X (Version None)
Quarter: 2010Q1

REPORT INFORMATION
  Report Type: 
  Country: None (occurrence: None)
  Receive Date: 20100124
  Receipt Date: 20091016
  Transmission Date: 20100710
  Serious: No
  Sender: FDA-Public Use
  Company Number: AU-ALEXION-A200900849

PATIENT
  Sex: Female

DRUGS (12)
  1. SOLIRIS [Suspect]
     Indication: PROPHYLAXIS AGAINST TRANSPLANT REJECTION
     Dosage: 1200 MG, UNK
     Route: 042
     Dates: start: 20091009, end: 20091009
  2. SOLIRIS [Suspect]
     Dosage: 900 MG, UNK
     Route: 042
     Dates: start: 20091001
  3. SOLIRIS [Suspect]
     Dosage: 600 MG, POST-PLASMA EXCHANGE
     Route: 042
     Dates: start: 20091001
  4. ATORVASTATIN CALCIUM [Concomitant]
  5. OMEPRAZOLE [Concomitant]
  6. VALPORATE [Concomitant]
  7. TELMISARTEN [Concomitant]
  8. METOPROLOL TARTRATE [Concomitant]
     Dosage: 25 MG, BID
  9. MYCOPHENOLATE MOFETIL [Concomitant]
  10. TACROLIMUS [Concomitant]
  11. BACTRIM [Concomitant]
  12. BASILIXUMAB [Concomitant]

REACTIONS (1)
  - TRANSPLANT REJECTION [None]
